FAERS Safety Report 5844575-4 (Version None)
Quarter: 2008Q3

REPORT INFORMATION
  Report Type: 
  Country: None (occurrence: None)
  Receive Date: 20080813
  Receipt Date: 20080813
  Transmission Date: 20090109
  Serious: No
  Sender: FDA-Public Use
  Company Number: None

PATIENT
  Age: 86 Year
  Sex: Male

DRUGS (1)
  1. IMMUNE GLOBULIN (HUMAN) [Suspect]
     Dosage: 30GM/300ML ONCE IV PIGGYBACK
     Route: 042
     Dates: start: 20080812, end: 20080812

REACTIONS (4)
  - CHILLS [None]
  - PALLOR [None]
  - PERIPHERAL COLDNESS [None]
  - TREMOR [None]
